FAERS Safety Report 6175300-8 (Version None)
Quarter: 2009Q2

REPORT INFORMATION
  Report Type: 
  Country: None (occurrence: None)
  Receive Date: 20090430
  Receipt Date: 20090211
  Transmission Date: 20091009
  Serious: No
  Sender: FDA-Public Use
  Company Number: US-ASTRAZENECA-2009UW04022

PATIENT
  Sex: Female
  Weight: 65.8 kg

DRUGS (9)
  1. NEXIUM [Suspect]
     Indication: GASTROOESOPHAGEAL REFLUX DISEASE
     Route: 048
  2. SINGULAIR [Concomitant]
  3. METFORMIN HCL [Concomitant]
  4. ZYRTEC [Concomitant]
  5. CADUET [Concomitant]
  6. SPIRONOLACTONE [Concomitant]
  7. ASTHMADEX [Concomitant]
  8. SYNALAR [Concomitant]
  9. PROAIR HFA [Concomitant]
     Indication: ASTHMA

REACTIONS (1)
  - REGURGITATION [None]
